FAERS Safety Report 7016303 (Version 3)
Quarter: 2014Q4

REPORT INFORMATION
  Report Type: Spontaneous
  Country: FR (occurrence: GB)
  Receive Date: 20090610
  Receipt Date: 20141014
  Transmission Date: 20150529
  Serious: Yes (Other)
  Sender: FDA-Public Use
  Company Number: FR-MYLANLABS-2005S1010657

PATIENT

DRUGS (10)
  1. MERCAPTAMINE [Suspect]
     Active Substance: CYSTEAMINE
     Dosage: 1 G,QD
  2. SODIUM BICARBONATE. [Concomitant]
     Active Substance: SODIUM BICARBONATE
     Dosage: UNK
     Dates: start: 19980104
  3. MERCAPTAMINE [Suspect]
     Active Substance: CYSTEAMINE
     Dosage: 1G,QD
  4. SANDO K                            /00031402/ [Concomitant]
     Dosage: UNK
     Dates: start: 19980104
  5. MERCAPTAMINE [Suspect]
     Active Substance: CYSTEAMINE
     Dosage: 1300 MG, QD
  6. MERCAPTAMINE [Suspect]
     Active Substance: CYSTEAMINE
     Dosage: 400MG,QD
  7. MERCAPTAMINE [Suspect]
     Active Substance: CYSTEAMINE
     Dosage: 1200 MG,QD
  8. MERCAPTAMINE [Suspect]
     Active Substance: CYSTEAMINE
     Dosage: 1200 MG,QD
     Route: 048
  9. ALPHACALCIDOL [Concomitant]
     Dosage: UNK
     Dates: start: 19980104
  10. MERCAPTAMINE [Suspect]
     Active Substance: CYSTEAMINE
     Indication: CYSTINOSIS
     Dosage: UNK UNK,QD

REACTIONS (4)
  - Skin striae [Not Recovered/Not Resolved]
  - Skin fragility [Recovered/Resolved]
  - Ehlers-Danlos syndrome [Unknown]
  - Intravascular papillary endothelial hyperplasia [Not Recovered/Not Resolved]
